FAERS Safety Report 24971810 (Version 1)
Quarter: 2025Q1

REPORT INFORMATION
  Report Type: Spontaneous
  Country: KR (occurrence: KR)
  Receive Date: 20250214
  Receipt Date: 20250214
  Transmission Date: 20250409
  Serious: Yes (Hospitalization, Other)
  Sender: PFIZER
  Company Number: KR-PFIZER INC-202500031732

PATIENT
  Age: 19 Year
  Sex: Male
  Weight: 71.9 kg

DRUGS (2)
  1. CYTARABINE [Suspect]
     Active Substance: CYTARABINE
     Indication: Acute leukaemia
     Dosage: 3700 MG, 1X/DAY
     Dates: start: 20230126, end: 20230129
  2. CYCLOPHOSPHAMIDE [Suspect]
     Active Substance: CYCLOPHOSPHAMIDE
     Indication: Acute leukaemia
     Dosage: 1380 MG, 1X/DAY
     Dates: start: 20230126, end: 20230126

REACTIONS (3)
  - Febrile neutropenia [Recovered/Resolved]
  - Haematochezia [Recovered/Resolved]
  - Platelet count decreased [Recovering/Resolving]

NARRATIVE: CASE EVENT DATE: 20230205
